FAERS Safety Report 8725241 (Version 5)
Quarter: 2012Q4

REPORT INFORMATION
  Report Type: Report from Study
  Country: CA (occurrence: CA)
  Receive Date: 20120815
  Receipt Date: 20121227
  Transmission Date: 20130627
  Serious: Yes (Other)
  Sender: FDA-Public Use
  Company Number: CA-ROCHE-1056164

PATIENT
  Age: 69 None
  Sex: Female
  Weight: 85.35 kg

DRUGS (15)
  1. TOCILIZUMAB [Suspect]
     Indication: RHEUMATOID ARTHRITIS
     Route: 042
     Dates: start: 20110606
  2. TOCILIZUMAB [Suspect]
     Route: 042
     Dates: start: 20120913
  3. VITAMIN D [Concomitant]
  4. RISEDRONATE [Concomitant]
  5. PREDNISONE [Concomitant]
  6. CLONAZEPAM [Concomitant]
  7. AMLODIPINE [Concomitant]
  8. DIOVAN [Concomitant]
  9. BISOPROLOL [Concomitant]
  10. ATORVASTATIN [Concomitant]
  11. VENTOLIN [Concomitant]
  12. ADVAIR [Concomitant]
  13. FOLINIC ACID [Concomitant]
  14. METHOTREXATE [Concomitant]
  15. LEUCOVORIN [Concomitant]

REACTIONS (16)
  - Upper limb fracture [Not Recovered/Not Resolved]
  - Fall [Unknown]
  - Vomiting [Unknown]
  - Palpitations [Not Recovered/Not Resolved]
  - Blood pressure increased [Not Recovered/Not Resolved]
  - Mouth ulceration [Not Recovered/Not Resolved]
  - Dizziness [Not Recovered/Not Resolved]
  - Fatigue [Not Recovered/Not Resolved]
  - Asthenia [Unknown]
  - Headache [Not Recovered/Not Resolved]
  - Erythema [Unknown]
  - Hypoaesthesia [Unknown]
  - Diarrhoea [Unknown]
  - Nausea [Not Recovered/Not Resolved]
  - Dry eye [Not Recovered/Not Resolved]
  - Dyspnoea [Recovering/Resolving]
